FAERS Safety Report 18132840 (Version 5)
Quarter: 2020Q4

REPORT INFORMATION
  Report Type: Spontaneous
  Country: CA (occurrence: CA)
  Receive Date: 20200811
  Receipt Date: 20201222
  Transmission Date: 20210113
  Serious: Yes (Other)
  Sender: FDA-Public Use
  Company Number: CA-ORION CORPORATION ORION PHARMA-20_00010267

PATIENT
  Age: 60 Year
  Sex: Female

DRUGS (4)
  1. PREDNISONE. [Concomitant]
     Active Substance: PREDNISONE
     Indication: PERIPHERAL SWELLING
     Route: 065
  2. METHOTREXATE (TRADE NAME UNKNOWN) [Suspect]
     Active Substance: METHOTREXATE
     Indication: PERIPHERAL SWELLING
     Route: 048
     Dates: start: 2015, end: 202005
  3. PLAQUENIL [Concomitant]
     Active Substance: HYDROXYCHLOROQUINE SULFATE
     Route: 065
  4. METHOTREXATE (TRADE NAME UNKNOWN) [Suspect]
     Active Substance: METHOTREXATE
     Route: 058
     Dates: start: 2015, end: 202005

REACTIONS (9)
  - Limb injury [Unknown]
  - Nodule [Unknown]
  - Muscular weakness [Recovered/Resolved]
  - Rheumatoid arthritis [Unknown]
  - Arthropathy [Unknown]
  - Pain [Unknown]
  - Drug intolerance [Unknown]
  - Joint stiffness [Recovering/Resolving]
  - Loss of personal independence in daily activities [Unknown]
